FAERS Safety Report 8737982 (Version 6)
Quarter: 2013Q1

REPORT INFORMATION
  Report Type: Spontaneous
  Country: GB (occurrence: GB)
  Receive Date: 20120823
  Receipt Date: 20130226
  Transmission Date: 20140127
  Serious: Yes (Other)
  Sender: FDA-Public Use
  Company Number: GB-009507513-1207GBR010872

PATIENT
  Age: 36 Year
  Sex: Female
  Weight: 69 kg

DRUGS (1)
  1. NEXPLANON [Suspect]
     Dosage: UNK
     Route: 059
     Dates: start: 20120523, end: 20120723

REACTIONS (8)
  - Malaise [Unknown]
  - Device difficult to use [Unknown]
  - Application site infection [Unknown]
  - Adverse reaction [Unknown]
  - Implant site scar [Unknown]
  - Diarrhoea [Unknown]
  - Haematemesis [Unknown]
  - Implant site bruising [Unknown]
